FAERS Safety Report 7251348-7 (Version None)
Quarter: 2011Q1

REPORT INFORMATION
  Report Type: 
  Country: None (occurrence: None)
  Receive Date: 20110128
  Receipt Date: 20110120
  Transmission Date: 20110831
  Serious: Yes (Other)
  Sender: FDA-Public Use
  Company Number: ES-ROCHE-754945

PATIENT
  Age: 60 Year
  Sex: Female

DRUGS (2)
  1. AVASTIN [Suspect]
     Route: 042
     Dates: start: 20101214, end: 20101214
  2. TAXOL [Suspect]
     Route: 042
     Dates: start: 20101214, end: 20101214

REACTIONS (2)
  - BRONCHOSPASM [None]
  - LARYNGEAL OEDEMA [None]
